FAERS Safety Report 7987942-5 (Version None)
Quarter: 2011Q4

REPORT INFORMATION
  Report Type: 
  Country: None (occurrence: None)
  Receive Date: 20111216
  Receipt Date: 20101119
  Transmission Date: 20120403
  Serious: No
  Sender: FDA-Public Use
  Company Number: US-BRISTOL-MYERS SQUIBB COMPANY-15398498

PATIENT
  Age: 1 Decade
  Sex: Female

DRUGS (3)
  1. ABILIFY [Suspect]
  2. HALDOL [Concomitant]
  3. RISPERDAL [Concomitant]

REACTIONS (1)
  - RASH [None]
